FAERS Safety Report 10099585 (Version 2)
Quarter: 2014Q2

REPORT INFORMATION
  Report Type: Spontaneous
  Country: HU (occurrence: HU)
  Receive Date: 20140423
  Receipt Date: 20140423
  Transmission Date: 20141212
  Serious: Yes (Other)
  Sender: FDA-Public Use
  Company Number: HU-ACTELION-A-CH2014-96055

PATIENT
  Age: 29 Year
  Sex: Male

DRUGS (2)
  1. TRACLEER [Suspect]
     Indication: SCLERODERMA ASSOCIATED DIGITAL ULCER
     Dosage: 62.5 MG, BID
     Route: 048
     Dates: start: 201401
  2. TRACLEER [Suspect]
     Dosage: 62.5 MG, BID
     Route: 048
     Dates: start: 201308, end: 201309

REACTIONS (2)
  - Lupus nephritis [Not Recovered/Not Resolved]
  - Proteinuria [Not Recovered/Not Resolved]
